FAERS Safety Report 25968355 (Version 1)
Quarter: 2025Q4

REPORT INFORMATION
  Report Type: Spontaneous
  Country: CN (occurrence: CN)
  Receive Date: 20251028
  Receipt Date: 20251028
  Transmission Date: 20260117
  Serious: Yes (Other)
  Sender: BIOLOGICAL E. LIMITED
  Company Number: CN-BELUSA-2025BELLIT0065

PATIENT

DRUGS (1)
  1. SUCCINYLCHOLINE [Suspect]
     Active Substance: SUCCINYLCHOLINE
     Indication: Neuromuscular blocking therapy
     Dosage: 0.1-0.2 MG/KG
     Route: 065

REACTIONS (2)
  - Hypoxia [Unknown]
  - Neuromuscular block prolonged [Unknown]
